FAERS Safety Report 12119589 (Version 1)
Quarter: 2016Q1

REPORT INFORMATION
  Report Type: Spontaneous
  Country: CA (occurrence: None)
  Receive Date: 20160225
  Receipt Date: 20160225
  Transmission Date: 20160526
  Serious: Yes (Disabling)
  Sender: FDA-Public Use
  Company Number: None

PATIENT
  Age: 23 Year
  Sex: Female
  Weight: 73.03 kg

DRUGS (5)
  1. IMMUNOCAL HERBAL TEAS [Concomitant]
  2. ADVIL [Concomitant]
     Active Substance: IBUPROFEN
  3. NUVARING [Suspect]
     Active Substance: ETHINYL ESTRADIOL\ETONOGESTREL
     Indication: CONTRACEPTION
     Dosage: 1 RING/MONTH 1 EVERY 3 WEEKS VAGINAL
  4. TYLENOL [Concomitant]
     Active Substance: ACETAMINOPHEN
  5. ASPIRIN. [Concomitant]
     Active Substance: ASPIRIN

REACTIONS (17)
  - Vulvovaginal dryness [None]
  - Tongue biting [None]
  - Libido decreased [None]
  - Nipple pain [None]
  - Smear cervix abnormal [None]
  - Hormone level abnormal [None]
  - Weight increased [None]
  - Urinary incontinence [None]
  - Stress [None]
  - Quality of life decreased [None]
  - Depression [None]
  - Dyspareunia [None]
  - Abnormal behaviour [None]
  - Breast mass [None]
  - Acne [None]
  - Hyperaesthesia [None]
  - Seizure [None]
